FAERS Safety Report 4633267-5 (Version None)
Quarter: 2005Q2

REPORT INFORMATION
  Report Type: 
  Country: None (occurrence: None)
  Receive Date: 20050408
  Receipt Date: 20050329
  Transmission Date: 20051028
  Serious: Yes (Death, Hospitalization)
  Sender: FDA-Public Use
  Company Number: 2005EU000551

PATIENT
  Age: 51 Year
  Sex: Male

DRUGS (4)
  1. PROGRAF [Suspect]
     Indication: LIVER TRANSPLANT
     Dosage: D, ORAL
     Route: 048
     Dates: start: 20040520, end: 20041206
  2. PREDNISONE TAB [Suspect]
     Indication: LIVER TRANSPLANT
     Dosage: SEE IMAGE, ORAL
     Route: 048
     Dates: end: 20041201
  3. PREDNISONE TAB [Suspect]
     Indication: LIVER TRANSPLANT
     Dosage: SEE IMAGE, ORAL
     Route: 048
     Dates: start: 20041201
  4. ROCEPHIN [Suspect]
     Indication: NOCARDIOSIS
     Dosage: D, INTRAVENOUS
     Route: 042

REACTIONS (24)
  - ANAEMIA [None]
  - ASPERGILLOSIS [None]
  - BONE MARROW DISORDER [None]
  - CANDIDA SEPSIS [None]
  - CARDIAC FAILURE [None]
  - CENTRAL NERVOUS SYSTEM INFECTION [None]
  - CONGESTIVE CARDIOMYOPATHY [None]
  - CONVULSION [None]
  - CYTOMEGALOVIRUS INFECTION [None]
  - EJECTION FRACTION DECREASED [None]
  - GRAFT VERSUS HOST DISEASE [None]
  - ISCHAEMIC CARDIOMYOPATHY [None]
  - LEFT VENTRICULAR FAILURE [None]
  - MITRAL VALVE DISEASE [None]
  - MYOCARDIAL INFARCTION [None]
  - NOCARDIOSIS [None]
  - OVERDOSE [None]
  - PERICARDIAL EFFUSION [None]
  - PLEURAL EFFUSION [None]
  - PULMONARY OEDEMA [None]
  - RENAL FAILURE [None]
  - SEROCONVERSION TEST POSITIVE [None]
  - THERAPY NON-RESPONDER [None]
  - THROMBOCYTOPENIA [None]
